FAERS Safety Report 8172449-5 (Version None)
Quarter: 2012Q1

REPORT INFORMATION
  Report Type: 
  Country: None (occurrence: None)
  Receive Date: 20120224
  Receipt Date: 20120224
  Transmission Date: 20120608
  Serious: No
  Sender: FDA-Public Use
  Company Number: None

PATIENT
  Age: 68 Year
  Sex: Female

DRUGS (2)
  1. FLUOROURACIL [Suspect]
     Dates: start: 20100421, end: 20100901
  2. OXALIPLATIN [Suspect]
     Dates: start: 20100421, end: 20100909

REACTIONS (6)
  - LIVER DISORDER [None]
  - JAUNDICE [None]
  - ASCITES [None]
  - HEPATIC STEATOSIS [None]
  - GALLBLADDER OEDEMA [None]
  - VENOOCCLUSIVE LIVER DISEASE [None]
